FAERS Safety Report 13298908 (Version 2)
Quarter: 2017Q1

REPORT INFORMATION
  Report Type: Spontaneous
  Country: JP (occurrence: JP)
  Receive Date: 20170306
  Receipt Date: 20170306
  Transmission Date: 20170428
  Serious: Yes (Other)
  Sender: FDA-Public Use
  Company Number: JP-SA-2017SA014277

PATIENT
  Age: 70 Year
  Sex: Female

DRUGS (4)
  1. LANTUS [Suspect]
     Active Substance: INSULIN GLARGINE
     Indication: DIABETES MELLITUS
     Dosage: DOSE:24 UNIT(S)
     Route: 065
  2. LANTUS XR [Suspect]
     Active Substance: INSULIN GLARGINE
     Indication: DIABETES MELLITUS
     Dosage: GLA-300 BEDTIME DOSE:24 UNIT(S)
     Route: 065
     Dates: start: 201601
  3. SOLOSTAR [Concomitant]
     Active Substance: DEVICE
  4. NOVORAPID [Suspect]
     Active Substance: INSULIN ASPART
     Indication: DIABETES MELLITUS
     Dosage: DOSE:18 UNIT(S)
     Route: 065

REACTIONS (3)
  - Wrong technique in product usage process [Unknown]
  - Diabetes mellitus inadequate control [Recovered/Resolved]
  - Injection site mass [Unknown]

NARRATIVE: CASE EVENT DATE: 20160130
